FAERS Safety Report 7227218-7 (Version None)
Quarter: 2011Q1

REPORT INFORMATION
  Report Type: 
  Country: None (occurrence: None)
  Receive Date: 20110114
  Receipt Date: 20101222
  Transmission Date: 20110831
  Serious: Yes (Other)
  Sender: FDA-Public Use
  Company Number: A0801187A

PATIENT
  Sex: Male
  Weight: 113.2 kg

DRUGS (7)
  1. AVANDIA [Suspect]
     Indication: DIABETES MELLITUS
     Route: 048
     Dates: end: 20060901
  2. AVANDAMET [Suspect]
     Indication: DIABETES MELLITUS
     Route: 048
  3. AMARYL [Concomitant]
  4. METOPROLOL [Concomitant]
  5. CLONIDINE [Concomitant]
  6. VYTORIN [Concomitant]
  7. LOTREL [Concomitant]

REACTIONS (4)
  - HYPERTENSION [None]
  - CARDIAC FAILURE CONGESTIVE [None]
  - ATRIAL FIBRILLATION [None]
  - CARDIOMYOPATHY [None]
